FAERS Safety Report 9150050 (Version 2)
Quarter: 2013Q2

REPORT INFORMATION
  Report Type: Report from Study
  Country: AU (occurrence: AU)
  Receive Date: 20130308
  Receipt Date: 20130501
  Transmission Date: 20140414
  Serious: Yes (Other)
  Sender: FDA-Public Use
  Company Number: AU-CELGENEUS-008-C5013-12072425

PATIENT
  Age: 79 Year
  Sex: Male
  Weight: 76 kg

DRUGS (15)
  1. CC-5013 [Suspect]
     Indication: PLASMA CELL MYELOMA
     Dosage: 10 MILLIGRAM
     Route: 048
     Dates: start: 20100525
  2. CC-5013 [Suspect]
     Dosage: 10 MILLIGRAM
     Route: 048
     Dates: start: 20120724
  3. CC-5013 [Suspect]
     Dosage: 10 MILLIGRAM
     Route: 048
     Dates: start: 20130207
  4. DEXAMETHASONE [Suspect]
     Indication: PLASMA CELL MYELOMA
     Dosage: 20 MILLIGRAM
     Route: 065
     Dates: start: 20100525
  5. DEXAMETHASONE [Suspect]
     Dosage: 20 MILLIGRAM
     Route: 065
     Dates: start: 20120724
  6. DEXAMETHASONE [Suspect]
     Dosage: 20 MILLIGRAM
     Route: 065
     Dates: start: 20130207
  7. CARTIA [Concomitant]
     Indication: THROMBOSIS PROPHYLAXIS
     Route: 048
     Dates: start: 20100521
  8. OSTELIN [Concomitant]
     Indication: VITAMIN SUPPLEMENTATION
     Route: 048
     Dates: start: 20100520
  9. CALCIUM CARBONATE [Concomitant]
     Indication: MINERAL SUPPLEMENTATION
     Route: 048
     Dates: start: 20100520
  10. PARACETAMOL [Concomitant]
     Indication: PAIN
     Route: 048
     Dates: start: 201004
  11. PARACETAMOL [Concomitant]
     Route: 048
     Dates: start: 20120717, end: 20120717
  12. PARACETAMOL [Concomitant]
     Route: 048
     Dates: start: 20120718, end: 20120718
  13. TEMAZEPAM [Concomitant]
     Indication: INSOMNIA
     Route: 048
     Dates: start: 201112
  14. KEFLEX [Concomitant]
     Indication: ANTI-INFECTIVE THERAPY
     Route: 048
     Dates: start: 20120418
  15. KENACOMB [Concomitant]
     Indication: ANTI-INFECTIVE THERAPY
     Route: 061
     Dates: start: 201205

REACTIONS (2)
  - Squamous cell carcinoma of skin [Recovered/Resolved]
  - Basal cell carcinoma [Not Recovered/Not Resolved]
